FAERS Safety Report 7917554-0 (Version None)
Quarter: 2011Q4

REPORT INFORMATION
  Report Type: 
  Country: None (occurrence: None)
  Receive Date: 20111116
  Receipt Date: 20111104
  Transmission Date: 20120403
  Serious: Yes (Hospitalization)
  Sender: FDA-Public Use
  Company Number: US-JNJFOC-20111102196

PATIENT
  Sex: Female
  Weight: 113.4 kg

DRUGS (16)
  1. VERAPAMIL [Concomitant]
     Indication: ARRHYTHMIA
  2. MAXZIDE [Concomitant]
     Indication: HYPERTENSION
  3. REMICADE [Suspect]
     Indication: RHEUMATOID ARTHRITIS
     Route: 042
     Dates: start: 20000101
  4. PREDNISONE [Concomitant]
     Indication: RHEUMATOID ARTHRITIS
  5. ZOVIRAX [Concomitant]
     Indication: ORAL HERPES
  6. BYSTOLIC [Concomitant]
     Indication: HYPERTENSION
     Dates: start: 20110101
  7. PRAVACHOL [Concomitant]
     Indication: BLOOD CHOLESTEROL INCREASED
  8. PREVACID [Concomitant]
     Indication: GASTROOESOPHAGEAL REFLUX DISEASE
  9. TOPROL-XL [Concomitant]
     Indication: HYPERTENSION
     Dates: start: 20110101
  10. METHOTREXATE [Concomitant]
     Indication: RHEUMATOID ARTHRITIS
  11. VICODIN [Concomitant]
     Indication: PAIN
  12. FOLIC ACID [Concomitant]
     Indication: NUTRITIONAL SUPPORT
  13. ADVAIR DISKUS 100/50 [Concomitant]
     Indication: ASTHMA
  14. REMICADE [Suspect]
     Route: 042
     Dates: start: 20000101
  15. ASPIRIN [Concomitant]
     Indication: CARDIAC DISORDER
  16. KLOR-CON [Concomitant]
     Indication: PRODUCT USED FOR UNKNOWN INDICATION
     Dates: start: 20000101

REACTIONS (8)
  - BACK DISORDER [None]
  - SPINAL DISORDER [None]
  - BRONCHOSPASM [None]
  - HYPOAESTHESIA [None]
  - CONTUSION [None]
  - BLOOD POTASSIUM DECREASED [None]
  - HERPES SIMPLEX [None]
  - RASH [None]
